FAERS Safety Report 6518792-4 (Version None)
Quarter: 2009Q4

REPORT INFORMATION
  Report Type: 
  Country: None (occurrence: None)
  Receive Date: 20091218
  Receipt Date: 20091207
  Transmission Date: 20100525
  Serious: Yes (Hospitalization, Other)
  Sender: FDA-Public Use
  Company Number: 2009AP004891

PATIENT
  Age: 76 Year
  Sex: Female

DRUGS (9)
  1. ALENDRONATE SODIUM [Suspect]
     Indication: PROPHYLAXIS
     Dosage: 10 MG PO; QD, 70 MG;QW, PO
     Route: 048
  2. PREDNISONE [Suspect]
     Indication: RHEUMATOID ARTHRITIS
     Dosage: 10 MG; QD;  5MG; QD
     Dates: start: 19960301
  3. PREDNISONE [Suspect]
     Indication: RHEUMATOID ARTHRITIS
     Dosage: 10 MG; QD;  5MG; QD
     Dates: start: 19990101
  4. OMEPRAZOLE [Suspect]
     Indication: RHEUMATOID ARTHRITIS
     Dates: start: 19850101
  5. METHOTREXATE [Suspect]
     Indication: RHEUMATOID ARTHRITIS
     Dosage: 15 MG; QW
     Dates: start: 19990101
  6. DICLOFENAC SODIUM [Concomitant]
  7. GOLD (GOLD) [Concomitant]
  8. PENICILLAMINE [Concomitant]
  9. INFLIXIMAB (INFLIXIMAB) [Concomitant]

REACTIONS (7)
  - BONE FORMATION DECREASED [None]
  - DYSSTASIA [None]
  - FEMUR FRACTURE [None]
  - PAIN IN EXTREMITY [None]
  - PATHOLOGICAL FRACTURE [None]
  - RESORPTION BONE INCREASED [None]
  - STRESS FRACTURE [None]
